FAERS Safety Report 6795379-X (Version None)
Quarter: 2010Q2

REPORT INFORMATION
  Report Type: 
  Country: None (occurrence: None)
  Receive Date: 20100625
  Receipt Date: 20100615
  Transmission Date: 20101027
  Serious: No
  Sender: FDA-Public Use
  Company Number: US-JNJFOC-20100605219

PATIENT
  Sex: Male
  Weight: 102.51 kg

DRUGS (4)
  1. SANDOZ FENTANYL TRANSDERMAL SYSTEM [Suspect]
     Indication: BACK PAIN
     Route: 062
  2. SANDOZ FENTANYL TRANSDERMAL SYSTEM [Suspect]
     Dosage: NDC# 0781-7243-55
     Route: 062
  3. OXYCODONE HCL AND ACETAMINOPHEN [Concomitant]
     Indication: PAIN
     Route: 048
  4. UNKNOWN MEDICATION [Concomitant]
     Indication: ANXIETY
     Route: 048

REACTIONS (4)
  - DRUG INEFFECTIVE [None]
  - FLUSHING [None]
  - INAPPROPRIATE SCHEDULE OF DRUG ADMINISTRATION [None]
  - WRONG TECHNIQUE IN DRUG USAGE PROCESS [None]
